FAERS Safety Report 12898172 (Version 1)
Quarter: 2016Q4

REPORT INFORMATION
  Report Type: Spontaneous
  Country: IN (occurrence: IN)
  Receive Date: 20161031
  Receipt Date: 20161031
  Transmission Date: 20170207
  Serious: Yes (Other)
  Sender: FDA-Public Use
  Company Number: IN-PFIZER INC-2016480796

PATIENT
  Age: 77 Year
  Sex: Female

DRUGS (1)
  1. AROMASIN [Suspect]
     Active Substance: EXEMESTANE
     Indication: BREAST CANCER METASTATIC
     Dosage: 25 MG, 1X/DAY
     Route: 048
     Dates: start: 20140121

REACTIONS (6)
  - Haematochezia [Unknown]
  - Urinary tract infection [Unknown]
  - Hepatic cirrhosis [Unknown]
  - Gastric ulcer [Unknown]
  - Haematemesis [Unknown]
  - Blood glucose abnormal [Unknown]
